FAERS Safety Report 19628522 (Version 25)
Quarter: 2025Q2

REPORT INFORMATION
  Report Type: Report from Study
  Country: US (occurrence: US)
  Receive Date: 20210729
  Receipt Date: 20250415
  Transmission Date: 20250717
  Serious: Yes (Hospitalization, Other)
  Sender: TAKEDA
  Company Number: US-TAKEDA-2021TUS036434

PATIENT
  Age: 57 Year
  Sex: Female
  Weight: 82 kg

DRUGS (54)
  1. HUMAN IMMUNOGLOBULIN G [Suspect]
     Active Substance: HUMAN IMMUNOGLOBULIN G
     Indication: Immunodeficiency common variable
     Dosage: 35 GRAM, Q4WEEKS
     Dates: start: 20210526
  2. HUMAN IMMUNOGLOBULIN G [Suspect]
     Active Substance: HUMAN IMMUNOGLOBULIN G
     Indication: Asthma
     Dosage: 40 GRAM, Q4WEEKS
  3. HUMAN IMMUNOGLOBULIN G [Suspect]
     Active Substance: HUMAN IMMUNOGLOBULIN G
     Dosage: 40 GRAM, Q4WEEKS
  4. HUMAN IMMUNOGLOBULIN G [Suspect]
     Active Substance: HUMAN IMMUNOGLOBULIN G
     Dosage: 35 GRAM, Q4WEEKS
     Dates: start: 20210729
  5. DEXAMETHASONE [Suspect]
     Active Substance: DEXAMETHASONE
     Indication: Product used for unknown indication
  6. HEPARIN [Concomitant]
     Active Substance: HEPARIN SODIUM
  7. DIPHENHYDRAMINE [Concomitant]
     Active Substance: DIPHENHYDRAMINE
  8. ALBUTEROL SULFATE [Concomitant]
     Active Substance: ALBUTEROL SULFATE
  9. ESOMEPRAZOLE MAGNESIUM [Concomitant]
     Active Substance: ESOMEPRAZOLE MAGNESIUM
  10. SODIUM CHLORIDE [Concomitant]
     Active Substance: SODIUM CHLORIDE
  11. EPINEPHRINE [Concomitant]
     Active Substance: EPINEPHRINE
  12. PROLIA [Concomitant]
     Active Substance: DENOSUMAB
  13. PROZAC [Concomitant]
     Active Substance: FLUOXETINE HYDROCHLORIDE
  14. POTASSIUM CHLORATE [Concomitant]
     Active Substance: POTASSIUM CHLORATE
  15. BACLOFEN [Concomitant]
     Active Substance: BACLOFEN
  16. TRELEGY ELLIPTA [Concomitant]
     Active Substance: FLUTICASONE FUROATE\UMECLIDINIUM BROMIDE\VILANTEROL TRIFENATATE
  17. ACETAMINOPHEN [Concomitant]
     Active Substance: ACETAMINOPHEN
  18. ALBUTEROL\IPRATROPIUM [Concomitant]
     Active Substance: ALBUTEROL\IPRATROPIUM
  19. SUMATRIPTAN SUCCINATE [Concomitant]
     Active Substance: SUMATRIPTAN SUCCINATE
  20. ZOLPIDEM TARTRATE [Concomitant]
     Active Substance: ZOLPIDEM TARTRATE
  21. ALPRAZOLAM [Concomitant]
     Active Substance: ALPRAZOLAM
  22. SODIUM CHLORIDE [Concomitant]
     Active Substance: SODIUM CHLORIDE
  23. CALCIUM [Concomitant]
     Active Substance: CALCIUM
  24. BACTRIM [Concomitant]
     Active Substance: SULFAMETHOXAZOLE\TRIMETHOPRIM
  25. DUPIXENT [Concomitant]
     Active Substance: DUPILUMAB
  26. VITAMIN D3 [Concomitant]
     Active Substance: CHOLECALCIFEROL
  27. LASIX [Concomitant]
     Active Substance: FUROSEMIDE
  28. VITAMIN B COMPLEX [Concomitant]
     Active Substance: CYANOCOBALAMIN\DEXPANTHENOL\NIACINAMIDE\PYRIDOXINE HYDROCHLORIDE\RIBOFLAVIN 5^-PHOSPHATE SODIUM\THIA
  29. LIDOCAINE [Concomitant]
     Active Substance: LIDOCAINE
  30. CYMBALTA [Concomitant]
     Active Substance: DULOXETINE HYDROCHLORIDE
  31. CLONAZEPAM [Concomitant]
     Active Substance: CLONAZEPAM
  32. PHENTERMINE HYDROCHLORIDE [Concomitant]
     Active Substance: PHENTERMINE HYDROCHLORIDE
  33. ESOMEPRAZOLE [Concomitant]
     Active Substance: ESOMEPRAZOLE
  34. Lmx [Concomitant]
  35. PREDNISONE [Concomitant]
     Active Substance: PREDNISONE
  36. QVAR [Concomitant]
     Active Substance: BECLOMETHASONE DIPROPIONATE
  37. CODEINE PHOSPHATE\GUAIFENESIN [Concomitant]
     Active Substance: CODEINE PHOSPHATE\GUAIFENESIN
  38. VIRTUSSIN AC [Concomitant]
     Active Substance: CODEINE PHOSPHATE\GUAIFENESIN
  39. BACTRIM DS [Concomitant]
     Active Substance: SULFAMETHOXAZOLE\TRIMETHOPRIM
  40. ZOLPIDEM [Concomitant]
     Active Substance: ZOLPIDEM TARTRATE
  41. ALBUTEROL SULFATE [Concomitant]
     Active Substance: ALBUTEROL SULFATE
  42. BUDESONIDE [Concomitant]
     Active Substance: BUDESONIDE
  43. CODEINE SULFATE [Concomitant]
     Active Substance: CODEINE SULFATE
  44. OXYGEN [Concomitant]
     Active Substance: OXYGEN
  45. POTASSIUM CHLORIDE [Concomitant]
     Active Substance: POTASSIUM CHLORIDE
  46. FORTEO [Concomitant]
     Active Substance: TERIPARATIDE
  47. VERAPAMIL [Concomitant]
     Active Substance: VERAPAMIL HYDROCHLORIDE
  48. GABAPENTIN [Concomitant]
     Active Substance: GABAPENTIN
  49. MAGNESIUM [Concomitant]
     Active Substance: MAGNESIUM
  50. METHYLPREDNISOLONE [Concomitant]
     Active Substance: METHYLPREDNISOLONE
  51. CEFDINIR [Concomitant]
     Active Substance: CEFDINIR
  52. MOXIFLOXACIN [Concomitant]
     Active Substance: MOXIFLOXACIN
  53. DIPHENHYDRAMINE HYDROCHLORIDE [Concomitant]
     Active Substance: DIPHENHYDRAMINE HYDROCHLORIDE
  54. ALBUTEROL [Concomitant]
     Active Substance: ALBUTEROL

REACTIONS (23)
  - Viral upper respiratory tract infection [Recovering/Resolving]
  - Adrenal disorder [Recovering/Resolving]
  - Formication [Unknown]
  - Compression fracture [Unknown]
  - Bronchitis [Unknown]
  - Arthritis infective [Not Recovered/Not Resolved]
  - COVID-19 [Unknown]
  - Spinal fracture [Unknown]
  - Pneumonia [Not Recovered/Not Resolved]
  - Asthma [Unknown]
  - Fatigue [Unknown]
  - Eye infection [Unknown]
  - Limb injury [Unknown]
  - Fall [Unknown]
  - Tendon rupture [Unknown]
  - Device breakage [Unknown]
  - Peripheral swelling [Unknown]
  - Inappropriate schedule of product administration [Unknown]
  - Productive cough [Unknown]
  - Respiratory disorder [Unknown]
  - Muscular weakness [Unknown]
  - Skin disorder [Unknown]
  - Sensitive skin [Unknown]

NARRATIVE: CASE EVENT DATE: 20210801
